FAERS Safety Report 21558521 (Version 1)
Quarter: 2022Q4

REPORT INFORMATION
  Report Type: Spontaneous
  Country: QA (occurrence: None)
  Receive Date: 20221107
  Receipt Date: 20221107
  Transmission Date: 20230112
  Serious: Yes (Death, Other)
  Sender: FDA-Public Use
  Company Number: QA-ROCHE-3211307

PATIENT

DRUGS (1)
  1. GAZYVA [Suspect]
     Active Substance: OBINUTUZUMAB
     Indication: Follicular lymphoma stage IV
     Route: 042

REACTIONS (8)
  - Pneumonia [Unknown]
  - Diarrhoea infectious [Unknown]
  - Blindness [Unknown]
  - Molluscum contagiosum [Unknown]
  - COVID-19 [Unknown]
  - Pulmonary embolism [Unknown]
  - Acute respiratory distress syndrome [Fatal]
  - Cytomegalovirus chorioretinitis [Unknown]
